FAERS Safety Report 13728561 (Version 3)
Quarter: 2017Q4

REPORT INFORMATION
  Report Type: Report from Study
  Country: None (occurrence: US)
  Receive Date: 20170707
  Receipt Date: 20171212
  Transmission Date: 20180320
  Serious: Yes (Death, Hospitalization)
  Sender: FDA-Public Use
  Company Number: US-ABBVIE-17K-163-2030902-00

PATIENT
  Sex: Male
  Weight: 95.79 kg

DRUGS (1)
  1. HUMIRA [Suspect]
     Active Substance: ADALIMUMAB
     Indication: CROHN^S DISEASE
     Route: 058
     Dates: start: 20160919, end: 20170611

REACTIONS (5)
  - Lung disorder [Fatal]
  - Cardiac failure congestive [Fatal]
  - Oedema [Fatal]
  - Pneumonia [Fatal]
  - Renal failure [Fatal]
